FAERS Safety Report 9029484 (Version 1)
Quarter: 2013Q1

REPORT INFORMATION
  Report Type: Spontaneous
  Country: US (occurrence: US)
  Receive Date: 20130124
  Receipt Date: 20130124
  Transmission Date: 20140127
  Serious: No
  Sender: FDA-Public Use
  Company Number: US-ASTRAZENECA-2013SE03577

PATIENT
  Age: 50 Year
  Sex: Female

DRUGS (11)
  1. SEROQUEL [Suspect]
     Indication: POST-TRAUMATIC STRESS DISORDER
     Route: 048
     Dates: start: 201205
  2. SEROQUEL [Suspect]
     Indication: ANXIETY DISORDER
     Route: 048
     Dates: start: 201205
  3. SEROQUEL [Suspect]
     Indication: POST-TRAUMATIC STRESS DISORDER
     Route: 048
     Dates: start: 201212
  4. SEROQUEL [Suspect]
     Indication: ANXIETY DISORDER
     Route: 048
     Dates: start: 201212
  5. SEROQUEL [Suspect]
     Indication: POST-TRAUMATIC STRESS DISORDER
     Route: 048
     Dates: start: 20130114
  6. SEROQUEL [Suspect]
     Indication: ANXIETY DISORDER
     Route: 048
     Dates: start: 20130114
  7. ATIVAN [Concomitant]
  8. CLONIDINE [Concomitant]
  9. CITZALOPRAM [Concomitant]
  10. AMITRIPTYLINE [Concomitant]
  11. WELLBUTRIN XL [Concomitant]

REACTIONS (3)
  - Weight increased [Unknown]
  - Blood triglycerides increased [Unknown]
  - Off label use [Unknown]
